FAERS Safety Report 6873125-9 (Version None)
Quarter: 2010Q3

REPORT INFORMATION
  Report Type: 
  Country: None (occurrence: None)
  Receive Date: 20100723
  Receipt Date: 20081210
  Transmission Date: 20110219
  Serious: Yes (Other)
  Sender: FDA-Public Use
  Company Number: US-PFIZER INC-2008093293

PATIENT
  Sex: Female
  Weight: 59.864 kg

DRUGS (17)
  1. CHANTIX [Suspect]
     Indication: SMOKING CESSATION THERAPY
     Route: 048
     Dates: start: 20081101, end: 20081102
  2. ALBUTEROL [Concomitant]
  3. ALL OTHER THERAPEUTIC PRODUCTS [Concomitant]
  4. PULMICORT [Concomitant]
  5. LORTAB [Concomitant]
     Dosage: 10 MG/325 MG
  6. CALCIUM [Concomitant]
  7. OXYGEN [Concomitant]
  8. PREMARIN [Concomitant]
     Dosage: UNK
  9. DUONEB [Concomitant]
     Dosage: UNK
  10. PREDNISONE [Concomitant]
     Dosage: UNK
  11. SKELAXIN [Concomitant]
     Dosage: UNK
  12. ACETYLSALICYLIC ACID [Concomitant]
     Dosage: UNK
  13. EXCEDRIN (MIGRAINE) [Concomitant]
     Dosage: UNK
  14. CLONOPIN [Concomitant]
     Dosage: UNK
  15. VALIUM [Concomitant]
     Dosage: UNK
  16. FLEXERIL [Concomitant]
     Dosage: UNK
  17. AUGMENTIN '125' [Concomitant]
     Dosage: UNK

REACTIONS (6)
  - ABDOMINAL PAIN UPPER [None]
  - CHEST PAIN [None]
  - DYSPNOEA [None]
  - HYPERHIDROSIS [None]
  - INITIAL INSOMNIA [None]
  - PRESYNCOPE [None]
